FAERS Safety Report 8522469-3 (Version None)
Quarter: 2012Q3

REPORT INFORMATION
  Report Type: 
  Country: None (occurrence: None)
  Receive Date: 20120709
  Receipt Date: 20120620
  Transmission Date: 20120928
  Serious: Yes (Hospitalization)
  Sender: FDA-Public Use
  Company Number: 2012-325

PATIENT
  Age: 58 Year
  Sex: Male
  Weight: 83 kg

DRUGS (1)
  1. PRIALT [Suspect]
     Indication: PAIN
     Dosage: 0.03 UG, ONCE/HOUR, INTRATHECAL
     Route: 037
     Dates: start: 20100701

REACTIONS (2)
  - PANCREATITIS ACUTE [None]
  - PANCREATITIS RELAPSING [None]
